FAERS Safety Report 5161972-3 (Version None)
Quarter: 2006Q4

REPORT INFORMATION
  Report Type: 
  Country: None (occurrence: None)
  Receive Date: 20061130
  Receipt Date: 20061121
  Transmission Date: 20070319
  Serious: Yes (Hospitalization)
  Sender: FDA-Public Use
  Company Number: JP-BRISTOL-MYERS SQUIBB COMPANY-13594494

PATIENT
  Age: 32 Year
  Sex: Female

DRUGS (10)
  1. ENDOXAN [Suspect]
     Indication: LUPUS NEPHRITIS
     Route: 041
     Dates: start: 20060922, end: 20060922
  2. PREDONINE [Concomitant]
  3. BACTRIM [Concomitant]
  4. WARFARIN SODIUM [Concomitant]
     Dates: start: 20060920
  5. MUCOSTA [Concomitant]
  6. ONEALFA [Concomitant]
  7. PARIET [Concomitant]
  8. RENIVACE [Concomitant]
  9. FERROMIA [Concomitant]
  10. ACTONEL [Concomitant]

REACTIONS (6)
  - ARTHRITIS [None]
  - HYPERKALAEMIA [None]
  - HYPERSENSITIVITY [None]
  - PYREXIA [None]
  - THERAPY NON-RESPONDER [None]
  - THROMBOSIS [None]
